FAERS Safety Report 7890058-X (Version None)
Quarter: 2011Q4

REPORT INFORMATION
  Report Type: 
  Country: None (occurrence: None)
  Receive Date: 20111103
  Receipt Date: 20111031
  Transmission Date: 20120403
  Serious: Yes (Death, Hospitalization)
  Sender: FDA-Public Use
  Company Number: FR-ELI_LILLY_AND_COMPANY-FR201107007539

PATIENT
  Sex: Male
  Weight: 58 kg

DRUGS (9)
  1. PYOSTACINE [Concomitant]
     Indication: ULCER
     Dosage: UNK
     Route: 048
     Dates: start: 20110709, end: 20110711
  2. ACETAMINOPHEN [Concomitant]
     Indication: PAIN
     Dosage: 1000 MG, PRN
     Route: 048
     Dates: start: 20110720, end: 20110722
  3. PERIKABIVEN [Concomitant]
     Dosage: 800 KCAL
     Route: 048
     Dates: start: 20110706, end: 20110722
  4. NEXIUM [Concomitant]
     Indication: PROPHYLAXIS
     Dosage: 20 MG, UNK
     Route: 048
     Dates: start: 20110711, end: 20110722
  5. POTASSIUM CHLORIDE [Concomitant]
     Indication: HYPOKALAEMIA
     Dosage: 312 MG, UNK
     Route: 048
     Dates: start: 20110719, end: 20110722
  6. GEMCITABINE HYDROCHLORIDE [Suspect]
     Indication: DIFFUSE LARGE B-CELL LYMPHOMA
     Dosage: 1000 MG/M2, QD
     Route: 042
     Dates: start: 20110607, end: 20110706
  7. OXYCODONE HCL [Concomitant]
     Indication: TUMOUR PAIN
     Dosage: UNK UNK, PRN
     Dates: start: 20110607, end: 20110722
  8. MOTILIUM [Concomitant]
     Indication: NAUSEA
     Dosage: 30 MG, TID
     Route: 048
     Dates: start: 20110720, end: 20110722
  9. DURAGESIC-100 [Concomitant]
     Indication: TUMOUR PAIN
     Dosage: UNK UNK, TID
     Dates: start: 20110607, end: 20110722

REACTIONS (3)
  - SEPSIS [None]
  - SKIN INFECTION [None]
  - DEATH [None]
